FAERS Safety Report 7700778-5 (Version None)
Quarter: 2011Q3

REPORT INFORMATION
  Report Type: 
  Country: None (occurrence: None)
  Receive Date: 20110817
  Receipt Date: 20110809
  Transmission Date: 20111222
  Serious: Yes (Death, Hospitalization)
  Sender: FDA-Public Use
  Company Number: JPI-P-005282

PATIENT
  Age: 81 Year
  Sex: Female

DRUGS (3)
  1. XYREM [Suspect]
     Indication: PRODUCT USED FOR UNKNOWN INDICATION
     Dosage: ORAL, 6 GM (3 GM, DISCONTINUED IN FEB OR MAR-2008), ORAL, 7.5 GM (3.75 GM, 2 IN 1 D), ORAL
     Route: 048
     Dates: start: 20050101, end: 20080301
  2. XYREM [Suspect]
     Indication: PRODUCT USED FOR UNKNOWN INDICATION
     Dosage: ORAL, 6 GM (3 GM, DISCONTINUED IN FEB OR MAR-2008), ORAL, 7.5 GM (3.75 GM, 2 IN 1 D), ORAL
     Route: 048
     Dates: start: 20040812
  3. XYREM [Suspect]
     Indication: PRODUCT USED FOR UNKNOWN INDICATION
     Dosage: ORAL, 6 GM (3 GM, DISCONTINUED IN FEB OR MAR-2008), ORAL, 7.5 GM (3.75 GM, 2 IN 1 D), ORAL
     Route: 048
     Dates: start: 20080301, end: 20080101

REACTIONS (3)
  - CARDIAC OPERATION [None]
  - LYMPHOMA [None]
  - DISEASE RECURRENCE [None]
